FAERS Safety Report 8346565-9 (Version None)
Quarter: 2012Q2

REPORT INFORMATION
  Report Type: 
  Country: None (occurrence: None)
  Receive Date: 20120509
  Receipt Date: 20120501
  Transmission Date: 20120825
  Serious: Yes (Other)
  Sender: FDA-Public Use
  Company Number: PHFR2012GB002690

PATIENT
  Age: 81 Year
  Sex: Male

DRUGS (4)
  1. AMITRIPTYLINE HCL [Concomitant]
     Dosage: UNK
  2. VOLTAREN [Suspect]
     Dosage: 1 DF, ONCE/SINGLE
  3. VOLTAREN [Suspect]
     Dosage: UNK
  4. VOLTAREN [Suspect]
     Dosage: UNK

REACTIONS (3)
  - HERNIA [None]
  - ABDOMINAL DISCOMFORT [None]
  - VARICOSE VEIN [None]
